FAERS Safety Report 8378391-9 (Version None)
Quarter: 2012Q2

REPORT INFORMATION
  Report Type: 
  Country: None (occurrence: None)
  Receive Date: 20120522
  Receipt Date: 20120504
  Transmission Date: 20120825
  Serious: No
  Sender: FDA-Public Use
  Company Number: US-ASTRAZENECA-2012SE29361

PATIENT
  Age: 44 Year
  Sex: Male

DRUGS (1)
  1. SYMBICORT [Suspect]
     Route: 055

REACTIONS (5)
  - PANIC ATTACK [None]
  - STRESS [None]
  - INTENTIONAL DRUG MISUSE [None]
  - ASTHMA [None]
  - ANXIETY [None]
